FAERS Safety Report 10286387 (Version 1)
Quarter: 2014Q3

REPORT INFORMATION
  Report Type: Spontaneous
  Country: US (occurrence: US)
  Receive Date: 20140709
  Receipt Date: 20140709
  Transmission Date: 20150326
  Serious: No
  Sender: FDA-Public Use
  Company Number: US-PFIZER INC-2014186591

PATIENT
  Age: 55 Year
  Sex: Female
  Weight: 53.06 kg

DRUGS (3)
  1. CELEBREX [Suspect]
     Active Substance: CELECOXIB
     Indication: NEURALGIA
  2. CELEBREX [Suspect]
     Active Substance: CELECOXIB
     Indication: NEURALGIA
     Dosage: UNK
     Dates: start: 201403, end: 2014
  3. MOTRIN [Concomitant]
     Active Substance: IBUPROFEN
     Dosage: 200 MG, 2X/DAY

REACTIONS (3)
  - Nausea [Unknown]
  - Abdominal discomfort [Unknown]
  - Inflammation [Unknown]

NARRATIVE: CASE EVENT DATE: 2014
